FAERS Safety Report 4375423-X (Version None)
Quarter: 2004Q2

REPORT INFORMATION
  Report Type: 
  Country: None (occurrence: None)
  Receive Date: 20040610
  Receipt Date: 20030416
  Transmission Date: 20050107
  Serious: Yes (Other)
  Sender: FDA-Public Use
  Company Number: 200311281EU

PATIENT
  Sex: Female
  Weight: 61 kg

DRUGS (2)
  1. CODE UNBROKEN [Suspect]
     Indication: HUNTINGTON'S CHOREA
     Route: 048
     Dates: start: 20010117
  2. MULTIVITAMIN [Concomitant]
     Indication: MEDICAL DIET
     Route: 048
     Dates: start: 20011001

REACTIONS (9)
  - CONDITION AGGRAVATED [None]
  - DISEASE RECURRENCE [None]
  - FATIGUE [None]
  - HYPOAESTHESIA [None]
  - MENINGIOMA [None]
  - PAIN [None]
  - PARAESTHESIA [None]
  - SENSORY DISTURBANCE [None]
  - TRANSIENT ISCHAEMIC ATTACK [None]
